FAERS Safety Report 8182223-1 (Version None)
Quarter: 2012Q1

REPORT INFORMATION
  Report Type: 
  Country: None (occurrence: None)
  Receive Date: 20120302
  Receipt Date: 20120223
  Transmission Date: 20120608
  Serious: Yes (Hospitalization)
  Sender: FDA-Public Use
  Company Number: PHHY2012GB015571

PATIENT
  Age: 53 Year
  Sex: Male
  Weight: 90.8 kg

DRUGS (7)
  1. LOSARTAN POTASSIUM [Concomitant]
     Dates: start: 20111201, end: 20120208
  2. PROPRANOLOL [Suspect]
     Route: 048
     Dates: start: 20111201, end: 20120208
  3. BECLOMETHASONE DIPROPIONATE [Concomitant]
  4. CODEINE SULFATE [Concomitant]
  5. AZATHIOPRINE [Concomitant]
  6. OMEPRAZOLE [Concomitant]
  7. ALBUTEROL [Concomitant]

REACTIONS (5)
  - NAUSEA [None]
  - ACUTE HEPATIC FAILURE [None]
  - JAUNDICE [None]
  - PRURITUS [None]
  - VOMITING [None]
